FAERS Safety Report 8999716 (Version 2)
Quarter: 2013Q1

REPORT INFORMATION
  Report Type: Report from Study
  Country: JP (occurrence: JP)
  Receive Date: 20130102
  Receipt Date: 20130117
  Transmission Date: 20140127
  Serious: Yes (Other)
  Sender: FDA-Public Use
  Company Number: JP-GLAXOSMITHKLINE-B0855111A

PATIENT
  Age: 84 Year
  Sex: Male

DRUGS (10)
  1. URIEF [Suspect]
     Indication: BENIGN PROSTATIC HYPERPLASIA
     Route: 048
  2. LENDORMIN [Concomitant]
     Indication: INSOMNIA
     Route: 048
     Dates: start: 20110711, end: 20110711
  3. LENDORMIN [Concomitant]
     Indication: INSOMNIA
     Route: 048
     Dates: start: 20110713, end: 20110713
  4. RISPERIDONE [Concomitant]
     Indication: DELIRIUM
     Route: 048
     Dates: start: 20110712, end: 20110712
  5. SAWACILLIN [Concomitant]
     Indication: INFLAMMATION
     Route: 048
     Dates: start: 20110713, end: 20110720
  6. ZOSYN [Concomitant]
     Indication: INFLAMMATION
     Route: 042
     Dates: start: 20110708, end: 20110712
  7. LACTEC [Concomitant]
     Route: 042
     Dates: start: 20110708, end: 20110713
  8. KCL [Concomitant]
     Route: 042
     Dates: start: 20110708, end: 20110708
  9. SOLDEM 3A [Concomitant]
     Route: 042
     Dates: start: 20110709, end: 20110715
  10. AVOLVE [Suspect]
     Indication: BENIGN PROSTATIC HYPERPLASIA
     Dosage: .5MG PER DAY
     Route: 048
     Dates: start: 20110609

REACTIONS (2)
  - Pyelonephritis acute [Recovering/Resolving]
  - Sepsis [Recovering/Resolving]
